FAERS Safety Report 8647930 (Version 4)
Quarter: 2012Q4

REPORT INFORMATION
  Report Type: 
  Country: CN (occurrence: CN)
  Receive Date: 20120703
  Receipt Date: 20121002
  Transmission Date: 20130627
  Serious: Yes (Other)
  Sender: FDA-Public Use
  Company Number: CN-NAPPMUNDI-MAG-2012-0002213

PATIENT
  Age: 68 Year
  Sex: Male

DRUGS (4)
  1. MORPHINE SULFATE CR TABLET 30 MG [Suspect]
     Indication: CANCER PAIN
     Dosage: UNK
     Route: 048
     Dates: start: 201206, end: 201206
  2. MORPHINE SULFATE CR TABLET 30 MG [Suspect]
     Dosage: 60 mg, UNK
     Dates: start: 20120529, end: 20120529
  3. MORPHINE SULFATE CR TABLET 30 MG [Suspect]
     Dosage: 30 mg, UNK
     Route: 048
     Dates: start: 20120527, end: 20120527
  4. TRAMADOL HCL [Suspect]
     Indication: PRODUCT USED FOR UNKNOWN INDICATION
     Route: 065

REACTIONS (2)
  - Chills [Recovered/Resolved]
  - Hyperpyrexia [Recovered/Resolved]
